FAERS Safety Report 5946341-8 (Version None)
Quarter: 2008Q4

REPORT INFORMATION
  Report Type: 
  Country: None (occurrence: None)
  Receive Date: 20081106
  Receipt Date: 20081022
  Transmission Date: 20090506
  Serious: Yes (Hospitalization)
  Sender: FDA-Public Use
  Company Number: DSU-2008-01761

PATIENT
  Age: 87 Year

DRUGS (1)
  1. OLMESARTAN MEDOXOMIL [Suspect]
     Indication: DRUG USE FOR UNKNOWN INDICATION
     Dosage: 20 MG (20 MG, QD), PER ORAL
     Route: 048
     Dates: start: 20080429

REACTIONS (3)
  - DIABETES MELLITUS [None]
  - HYPERTENSION [None]
  - MULTIPLE MYELOMA [None]
